FAERS Safety Report 7720259-2 (Version None)
Quarter: 2011Q3

REPORT INFORMATION
  Report Type: 
  Country: None (occurrence: None)
  Receive Date: 20110831
  Receipt Date: 20110824
  Transmission Date: 20111222
  Serious: Yes (Hospitalization)
  Sender: FDA-Public Use
  Company Number: US-PFIZER INC-2011127876

PATIENT
  Sex: Female
  Weight: 82.766 kg

DRUGS (17)
  1. NAPROXEN [Suspect]
     Indication: OSTEOARTHRITIS
     Dosage: 3X/DAY
     Route: 048
     Dates: start: 20081121, end: 20110206
  2. CELECOXIB [Suspect]
     Indication: RHEUMATOID ARTHRITIS
  3. IBUPROFEN [Suspect]
     Indication: RHEUMATOID ARTHRITIS
  4. NAPROXEN [Suspect]
     Indication: RHEUMATOID ARTHRITIS
  5. BLINDED PLACEBO [Suspect]
     Indication: RHEUMATOID ARTHRITIS
  6. CELECOXIB [Suspect]
     Indication: OSTEOARTHRITIS
     Dosage: 3X/DAY
     Route: 048
     Dates: start: 20081121, end: 20110206
  7. NAPROXEN [Suspect]
  8. IBUPROFEN [Suspect]
     Indication: OSTEOARTHRITIS
     Dosage: 3X/DAY
     Route: 048
     Dates: start: 20081121, end: 20110206
  9. IBUPROFEN [Suspect]
  10. ALPRAZOLAM [Suspect]
     Indication: ANXIETY
     Dosage: 0.5 MG, AS NEEDED
     Route: 048
     Dates: start: 20070101, end: 20110207
  11. BLINDED NO SUBJECT DRUG [Suspect]
     Indication: RHEUMATOID ARTHRITIS
  12. PERCOCET [Suspect]
     Indication: BACK PAIN
     Dosage: 7.5/500 MG, QID AS NEEDED
     Route: 048
     Dates: start: 20100719, end: 20110216
  13. NEXIUM [Concomitant]
     Indication: PROPHYLAXIS
     Dosage: 20 OR 40 MG/KG, 1X/DAY
     Route: 048
     Dates: start: 20081121
  14. IBUPROFEN [Suspect]
     Dosage: 3X/DAY
     Route: 048
     Dates: start: 20081121, end: 20110206
  15. BLINDED NO SUBJECT DRUG [Suspect]
     Indication: OSTEOARTHRITIS
     Dosage: 3X/DAY
     Route: 048
     Dates: start: 20081121, end: 20110206
  16. BLINDED PLACEBO [Suspect]
     Indication: OSTEOARTHRITIS
     Dosage: 3X/DAY
     Route: 048
     Dates: start: 20081121, end: 20110206
  17. NAPROXEN [Suspect]
     Dosage: 3X/DAY
     Route: 048
     Dates: start: 20081121, end: 20110206

REACTIONS (1)
  - MENTAL STATUS CHANGES [None]
